FAERS Safety Report 8271291-4 (Version None)
Quarter: 2012Q2

REPORT INFORMATION
  Report Type: 
  Country: None (occurrence: None)
  Receive Date: 20120406
  Receipt Date: 20120323
  Transmission Date: 20120825
  Serious: Yes (Other)
  Sender: FDA-Public Use
  Company Number: JP-2012-14609

PATIENT
  Age: 57 Year
  Sex: Male
  Weight: 72 kg

DRUGS (13)
  1. SAMSCA [Suspect]
     Indication: CARDIAC FAILURE
     Dosage: 15 MG MILLIGRAM(S), QD, ORAL, 3.75 MG MILLIGRAM(S), DAILY DOSE, ORAL
     Route: 048
     Dates: start: 20120207, end: 20120209
  2. SAMSCA [Suspect]
     Indication: CARDIAC FAILURE
     Dosage: 15 MG MILLIGRAM(S), QD, ORAL, 3.75 MG MILLIGRAM(S), DAILY DOSE, ORAL
     Route: 048
     Dates: start: 20120217
  3. INDAPAMIDE [Suspect]
     Indication: CARDIAC FAILURE
     Dosage: 2 MG MILLIGRAM(S), QD, ORAL
     Route: 048
  4. LASIX [Concomitant]
  5. ANCARON (AMIODARONE HYDROCHLORIDE) TABLET [Concomitant]
  6. SPIRONOLACTONE [Concomitant]
  7. WARFARIN SODIUM [Suspect]
     Indication: ATRIAL FIBRILLATION
     Dosage: 1.5 MG MILLIGRAM(S), QD, ORAL
     Route: 048
  8. THYRADIN (THYROID) TABLET [Concomitant]
  9. LANSOPRAZOLE [Concomitant]
  10. MAGMITT (MAGNESIUM OXIDE) TABLET [Concomitant]
  11. LASIX [Concomitant]
  12. PARAMIDIN (BUCOLOME) CAPSULE [Concomitant]
  13. HANP (CARPERITIDE) INJECTION [Concomitant]

REACTIONS (5)
  - THERAPEUTIC RESPONSE DECREASED [None]
  - DEPRESSED LEVEL OF CONSCIOUSNESS [None]
  - HAEMOCONCENTRATION [None]
  - DEHYDRATION [None]
  - CEREBRAL INFARCTION [None]
